FAERS Safety Report 10257421 (Version 1)
Quarter: 2014Q2

REPORT INFORMATION
  Report Type: Spontaneous
  Country: AU (occurrence: AU)
  Receive Date: 20140625
  Receipt Date: 20140625
  Transmission Date: 20141212
  Serious: Yes (Hospitalization, Other)
  Sender: FDA-Public Use
  Company Number: AU-AMGEN-AUSSP2014046321

PATIENT
  Age: 45 Year
  Sex: Male
  Weight: 58.9 kg

DRUGS (9)
  1. PEGFILGRASTIM [Suspect]
     Indication: PRODUCT USED FOR UNKNOWN INDICATION
     Dosage: 6 MILLIGRAM, DAILY
     Route: 058
     Dates: start: 20131216
  2. BLEOMYCIN SULPHATE [Suspect]
     Indication: PRODUCT USED FOR UNKNOWN INDICATION
     Dosage: 30000 UNK, UNK
     Route: 042
     Dates: start: 20131216, end: 20140113
  3. APREPITANT [Concomitant]
     Dosage: 168 MG, QD
  4. CISPLATIN [Concomitant]
     Dosage: 33 MG, UNK
     Dates: start: 20131216
  5. ETOPOSIDE [Concomitant]
     Dosage: 164 MG, DAILY
     Dates: start: 20131216
  6. MAGNESIUM [Concomitant]
     Dosage: 10 MILLIMOLE, DAILY
     Route: 042
     Dates: start: 20131216
  7. METOCLOPRAMIDE HYDROCHLORIDE [Concomitant]
     Dosage: UNK
  8. ONDANSETRON HYDROCHLORIDE DIHYDRATE [Concomitant]
     Dosage: UNK
  9. PARACETAMOL [Concomitant]
     Dosage: 1 G, UNK
     Route: 048
     Dates: start: 20131216

REACTIONS (3)
  - Skin discolouration [Unknown]
  - Peripheral coldness [Unknown]
  - Pain in extremity [Unknown]
